FAERS Safety Report 8460421-7 (Version None)
Quarter: 2012Q2

REPORT INFORMATION
  Report Type: 
  Country: None (occurrence: None)
  Receive Date: 20120622
  Receipt Date: 20120615
  Transmission Date: 20120825
  Serious: Yes (Hospitalization, Other)
  Sender: FDA-Public Use
  Company Number: US-US-EMD SERONO, INC.-7129918

PATIENT
  Sex: Female

DRUGS (2)
  1. REBIF [Suspect]
     Indication: MULTIPLE SCLEROSIS
     Route: 058
     Dates: start: 20081224, end: 20120401
  2. REBIF [Suspect]
     Dates: start: 20120612

REACTIONS (10)
  - STAPHYLOCOCCAL INFECTION [None]
  - OSTEOMYELITIS [None]
  - CELLULITIS [None]
  - PNEUMONIA [None]
  - CHILLS [None]
  - CHRONIC OBSTRUCTIVE PULMONARY DISEASE [None]
  - MULTIPLE SCLEROSIS RELAPSE [None]
  - GASTROENTERITIS [None]
  - HAEMATOMA [None]
  - PYREXIA [None]
